FAERS Safety Report 9503683 (Version 1)
Quarter: 2013Q1

REPORT INFORMATION
  Report Type: Spontaneous
  Country: US (occurrence: None)
  Receive Date: 20130225
  Receipt Date: 20130225
  Transmission Date: 20140127
  Serious: No
  Sender: FDA-Public Use
  Company Number: 366856

PATIENT
  Age: 55 Year
  Sex: Male

DRUGS (2)
  1. VICTOZA (LIRAGLUTIDE) SOLUTION FOR INJECTION, 6MG/ML [Suspect]
     Indication: DIABETES MELLITUS
     Route: 058
  2. METFORMIN [Concomitant]

REACTIONS (4)
  - Chest pain [None]
  - Dizziness [None]
  - Hypoaesthesia [None]
  - Migraine [None]
